FAERS Safety Report 18040455 (Version 2)
Quarter: 2020Q3

REPORT INFORMATION
  Report Type: Spontaneous
  Country: FR (occurrence: FR)
  Receive Date: 20200717
  Receipt Date: 20200720
  Transmission Date: 20201103
  Serious: Yes (Hospitalization)
  Sender: FDA-Public Use
  Company Number: FR-CELGENEUS-FRA-20200703764

PATIENT
  Age: 79 Year
  Sex: Male
  Weight: 71 kg

DRUGS (20)
  1. LENALIDOMIDE [Suspect]
     Active Substance: LENALIDOMIDE
     Indication: PLASMA CELL MYELOMA
     Dosage: 10 MILLIGRAM
     Route: 048
     Dates: start: 20160804, end: 20191014
  2. DESLORATADINE. [Concomitant]
     Active Substance: DESLORATADINE
     Indication: THROMBOSIS PROPHYLAXIS
  3. ESOMEPRAZOLE. [Concomitant]
     Active Substance: ESOMEPRAZOLE MAGNESIUM
     Indication: ABDOMINAL PAIN UPPER
     Dosage: 20 MILLIGRAM
     Route: 048
     Dates: start: 20160804
  4. DEDROGYL [Concomitant]
     Active Substance: CALCIFEDIOL
     Indication: VITAMIN D DEFICIENCY
     Route: 048
     Dates: start: 2003
  5. VALACICLOVIR [Concomitant]
     Active Substance: VALACYCLOVIR HYDROCHLORIDE
     Indication: INFECTION PROPHYLAXIS
     Dosage: 500 MILLIGRAM
     Route: 048
     Dates: start: 20160804
  6. DEXAFREE [Concomitant]
     Active Substance: DEXAMETHASONE SODIUM PHOSPHATE
     Indication: CONJUNCTIVAL OEDEMA
     Dosage: 1 MILLIGRAM
     Route: 047
     Dates: start: 2018
  7. DEXAMETHASONE. [Suspect]
     Active Substance: DEXAMETHASONE
     Indication: PLASMA CELL MYELOMA
     Dosage: 20 MILLIGRAM
     Route: 048
     Dates: start: 20160804, end: 20191014
  8. ZALERG [Concomitant]
     Active Substance: KETOTIFEN FUMARATE
     Indication: CONJUNCTIVAL OEDEMA
     Dosage: 25 MILLIGRAM
     Route: 047
     Dates: start: 2018
  9. DICLOFENAC [Concomitant]
     Active Substance: DICLOFENAC
     Indication: GYNAECOMASTIA
     Route: 061
     Dates: start: 20191014
  10. EDUCTYL [Concomitant]
     Active Substance: POTASSIUM BITARTRATE\SODIUM BICARBONATE
     Indication: CONSTIPATION
     Route: 054
     Dates: start: 20160915
  11. TOBRADEX [Concomitant]
     Active Substance: DEXAMETHASONE\TOBRAMYCIN
     Indication: VITAMIN D DEFICIENCY
     Dosage: 25 MICROGRAM
     Route: 065
  12. ESOMEPRAZOLE. [Concomitant]
     Active Substance: ESOMEPRAZOLE MAGNESIUM
     Indication: THROMBOSIS PROPHYLAXIS
  13. DESLORATADINE. [Concomitant]
     Active Substance: DESLORATADINE
     Indication: PROPHYLAXIS
     Dosage: 5 MILLIGRAM
     Route: 048
     Dates: start: 20160804
  14. LANSOYL [Concomitant]
     Active Substance: MINERAL OIL
     Indication: CONSTIPATION
     Route: 054
     Dates: start: 20160915
  15. DACRYOSERUM [Concomitant]
     Active Substance: BORIC ACID\SODIUM BORATE
     Indication: CONJUNCTIVOCHALASIS
     Route: 065
     Dates: start: 201807
  16. PERMIXON [Concomitant]
     Active Substance: HERBALS\SAW PALMETTO
     Indication: URINARY RETENTION
     Dosage: 160 MILLIGRAM
     Route: 048
  17. HYALURONIC ACID [Concomitant]
     Active Substance: HYALURONIC ACID
     Indication: PRODUCT USED FOR UNKNOWN INDICATION
     Route: 065
     Dates: start: 201807
  18. DARATUMUMAB [Concomitant]
     Active Substance: DARATUMUMAB
     Indication: PLASMA CELL MYELOMA
     Dosage: 40 MILLIGRAM
     Route: 041
     Dates: start: 20160804, end: 20191014
  19. KARDEGIC [Concomitant]
     Active Substance: ASPIRIN DL-LYSINE
     Indication: THROMBOSIS PROPHYLAXIS
     Dosage: 500 MILLIGRAM
     Route: 048
     Dates: start: 20160804
  20. AMLOR [Concomitant]
     Active Substance: AMLODIPINE BESYLATE
     Indication: HYPERTENSION
     Dosage: 5 MILLIGRAM
     Route: 048
     Dates: start: 2003

REACTIONS (1)
  - Purulent discharge [Not Recovered/Not Resolved]

NARRATIVE: CASE EVENT DATE: 20190604
